FAERS Safety Report 8145106-9 (Version None)
Quarter: 2012Q1

REPORT INFORMATION
  Report Type: 
  Country: None (occurrence: None)
  Receive Date: 20120217
  Receipt Date: 20120210
  Transmission Date: 20120608
  Serious: Yes (Other)
  Sender: FDA-Public Use
  Company Number: PHEH2012US002153

PATIENT
  Sex: Male
  Weight: 83.9 kg

DRUGS (8)
  1. ASPIRIN [Concomitant]
  2. AMLODIPINE [Concomitant]
  3. EXJADE [Suspect]
     Indication: IRON OVERLOAD
     Dosage: 1500 MG QD
     Route: 048
     Dates: start: 20091130, end: 20111216
  4. DECITABINE [Concomitant]
  5. COMPAZINE [Concomitant]
  6. COLCHICINE [Concomitant]
  7. FOLIC ACID [Concomitant]
  8. PRAVASTATIN [Concomitant]

REACTIONS (14)
  - MALAISE [None]
  - PANCYTOPENIA [None]
  - CONSTIPATION [None]
  - FATIGUE [None]
  - HEADACHE [None]
  - DECREASED APPETITE [None]
  - GASTRIC ULCER [None]
  - LEUKAEMIA [None]
  - WHITE BLOOD CELL COUNT DECREASED [None]
  - PLATELET COUNT DECREASED [None]
  - MUCOSAL INFLAMMATION [None]
  - WEIGHT DECREASED [None]
  - ABDOMINAL PAIN [None]
  - NIGHT SWEATS [None]
